FAERS Safety Report 14823807 (Version 1)
Quarter: 2018Q2

REPORT INFORMATION
  Report Type: Spontaneous
  Country: US (occurrence: US)
  Receive Date: 20180428
  Receipt Date: 20180428
  Transmission Date: 20180711
  Serious: Yes (Hospitalization)
  Sender: FDA-Public Use
  Company Number: US-TEVA-2018-US-886995

PATIENT
  Sex: Female

DRUGS (1)
  1. COPAXONE [Suspect]
     Active Substance: GLATIRAMER ACETATE
     Indication: MULTIPLE SCLEROSIS
     Route: 058
     Dates: start: 19991031

REACTIONS (4)
  - Hypoaesthesia [Unknown]
  - Multiple sclerosis relapse [Unknown]
  - Motor dysfunction [Unknown]
  - Gait disturbance [Unknown]

NARRATIVE: CASE EVENT DATE: 2011
